FAERS Safety Report 15131832 (Version 1)
Quarter: 2018Q3

REPORT INFORMATION
  Report Type: Other
  Country: US (occurrence: US)
  Receive Date: 20180711
  Receipt Date: 20180711
  Transmission Date: 20181010
  Serious: Yes (Other)
  Sender: FDA-Public Use
  Company Number: US-MEDICURE INC.-2051805

PATIENT
  Sex: Male

DRUGS (3)
  1. AGGRASTAT [Suspect]
     Active Substance: TIROFIBAN HYDROCHLORIDE
     Indication: OFF LABEL USE
     Route: 041
  2. CLOPIDOGREL [Concomitant]
     Active Substance: CLOPIDOGREL BISULFATE
  3. ASPIRIN. [Concomitant]
     Active Substance: ASPIRIN

REACTIONS (1)
  - Cerebral haemorrhage [Recovered/Resolved with Sequelae]
